FAERS Safety Report 4752202-2 (Version None)
Quarter: 2005Q3

REPORT INFORMATION
  Report Type: 
  Country: None (occurrence: None)
  Receive Date: 20050825
  Receipt Date: 20050819
  Transmission Date: 20060218
  Serious: Yes (Hospitalization)
  Sender: FDA-Public Use
  Company Number: PHFR2005GB02839

PATIENT
  Sex: Male

DRUGS (2)
  1. PHENYTOIN [Concomitant]
  2. BACLOFEN [Suspect]
     Indication: MUSCLE SPASTICITY
     Dosage: 5 MG, BID

REACTIONS (5)
  - DRUG LEVEL BELOW THERAPEUTIC [None]
  - DRUG WITHDRAWAL CONVULSIONS [None]
  - DRUG WITHDRAWAL SYNDROME [None]
  - HYPERTHERMIA [None]
  - SOMNOLENCE [None]
